FAERS Safety Report 19219275 (Version 2)
Quarter: 2021Q2

REPORT INFORMATION
  Report Type: Spontaneous
  Country: DE (occurrence: DE)
  Receive Date: 20210506
  Receipt Date: 20210603
  Transmission Date: 20210717
  Serious: No
  Sender: FDA-Public Use
  Company Number: DE-JNJFOC-20210443984

PATIENT
  Age: 55 Year

DRUGS (3)
  1. DUROGESIC SMAT [Suspect]
     Active Substance: FENTANYL
     Indication: PRODUCT USED FOR UNKNOWN INDICATION
     Dosage: STRENGTH: 75.00 MCG/HR
     Route: 062
  2. DUROGESIC SMAT [Suspect]
     Active Substance: FENTANYL
     Route: 062
  3. DUROGESIC SMAT [Suspect]
     Active Substance: FENTANYL

REACTIONS (5)
  - Product adhesion issue [Unknown]
  - Product packaging issue [Unknown]
  - Underdose [Unknown]
  - Product complaint [Unknown]
  - Drug ineffective [Unknown]
